FAERS Safety Report 5183531-9 (Version None)
Quarter: 2006Q4

REPORT INFORMATION
  Report Type: 
  Country: None (occurrence: None)
  Receive Date: 20061220
  Receipt Date: 20060118
  Transmission Date: 20070319
  Serious: No
  Sender: FDA-Public Use
  Company Number: US-GLAXOSMITHKLINE-A0589848A

PATIENT
  Age: 41 Year
  Sex: Female

DRUGS (5)
  1. NICODERM CQ [Suspect]
     Dates: start: 20060116, end: 20060117
  2. PREDNISONE TAB [Concomitant]
  3. PRIMATENE [Concomitant]
  4. ASTHMA MEDICATION [Concomitant]
  5. CODEINE [Concomitant]

REACTIONS (7)
  - ASTHENIA [None]
  - BEDRIDDEN [None]
  - CARDIAC FLUTTER [None]
  - DIZZINESS [None]
  - FEELING ABNORMAL [None]
  - MALAISE [None]
  - NAUSEA [None]
